FAERS Safety Report 21665886 (Version 2)
Quarter: 2022Q4

REPORT INFORMATION
  Report Type: Spontaneous
  Country: IL (occurrence: IL)
  Receive Date: 20221201
  Receipt Date: 20221213
  Transmission Date: 20230112
  Serious: No
  Sender: FDA-Public Use
  Company Number: IL-TERSERA THERAPEUTICS LLC-2022TRS005204

PATIENT

DRUGS (10)
  1. XERMELO [Suspect]
     Active Substance: TELOTRISTAT ETHYL
     Indication: Carcinoid syndrome
     Dosage: 250 MG THRICE DAILY
     Route: 065
     Dates: start: 2019
  2. XERMELO [Suspect]
     Active Substance: TELOTRISTAT ETHYL
     Dosage: 500 MILLIGRAM EVERY 8 HOUR(S)
     Route: 065
  3. LANREOTIDE ACETATE [Concomitant]
     Active Substance: LANREOTIDE ACETATE
     Indication: Small intestine neuroendocrine tumour
     Dosage: 120 MILLIGRAM EVERY 28 DAY(S)
     Route: 058
     Dates: start: 20150122, end: 2018
  4. LANREOTIDE ACETATE [Concomitant]
     Active Substance: LANREOTIDE ACETATE
     Indication: Neuroendocrine tumour
     Dosage: 120 MILLIGRAM EVERY 21 DAY(S)
     Route: 058
     Dates: start: 20181016, end: 2022
  5. LANREOTIDE ACETATE [Concomitant]
     Active Substance: LANREOTIDE ACETATE
     Indication: Hepatic neuroendocrine tumour
     Dosage: 120 MILLIGRAM EVERY 14 DAY(S)
     Route: 058
     Dates: start: 20221003
  6. LANREOTIDE ACETATE [Concomitant]
     Active Substance: LANREOTIDE ACETATE
     Indication: Carcinoid syndrome
  7. LEVOTHYROXINE [Concomitant]
     Active Substance: LEVOTHYROXINE
     Indication: Product used for unknown indication
     Dosage: UNK
     Route: 065
  8. LEVOTHYROXINE [Concomitant]
     Active Substance: LEVOTHYROXINE
     Dosage: UNK
     Route: 065
  9. CREON [Concomitant]
     Active Substance: PANCRELIPASE AMYLASE\PANCRELIPASE LIPASE\PANCRELIPASE PROTEASE
     Indication: Product used for unknown indication
     Dosage: UNK
     Route: 065
  10. CREON [Concomitant]
     Active Substance: PANCRELIPASE AMYLASE\PANCRELIPASE LIPASE\PANCRELIPASE PROTEASE
     Dosage: UNK
     Route: 065

REACTIONS (2)
  - Prescribed overdose [Unknown]
  - Product prescribing issue [Unknown]
